FAERS Safety Report 14901878 (Version 1)
Quarter: 2018Q2

REPORT INFORMATION
  Report Type: Spontaneous
  Country: US (occurrence: US)
  Receive Date: 20180516
  Receipt Date: 20180516
  Transmission Date: 20180711
  Serious: Yes (Other)
  Sender: FDA-Public Use
  Company Number: US-BAYER-2018-089934

PATIENT
  Sex: Female

DRUGS (1)
  1. ESTRADIOL. [Suspect]
     Active Substance: ESTRADIOL
     Dosage: UNK
     Route: 062

REACTIONS (5)
  - Uterine haemorrhage [Not Recovered/Not Resolved]
  - Intentional product use issue [None]
  - Product adhesion issue [Unknown]
  - Wrong technique in product usage process [None]
  - Drug ineffective [Not Recovered/Not Resolved]
